FAERS Safety Report 18606045 (Version 1)
Quarter: 2020Q4

REPORT INFORMATION
  Report Type: Spontaneous
  Country: ID (occurrence: ID)
  Receive Date: 20201211
  Receipt Date: 20201211
  Transmission Date: 20210114
  Serious: Yes (Death)
  Sender: FDA-Public Use
  Company Number: ID-PFIZER INC-2020470162

PATIENT
  Age: 15 Year
  Sex: Female

DRUGS (3)
  1. TIGECYCLINE. [Suspect]
     Active Substance: TIGECYCLINE
     Indication: ACINETOBACTER SEPSIS
     Dosage: 100 MG, 2X/DAY (EVERY 12 HOUR)
     Route: 042
  2. MEROPENEM. [Suspect]
     Active Substance: MEROPENEM
     Indication: EVIDENCE BASED TREATMENT
     Dosage: 1 G, 3X/DAY (EVERY 8 HOURS)
     Route: 042
  3. TIGECYCLINE. [Suspect]
     Active Substance: TIGECYCLINE
     Indication: ANTIBIOTIC THERAPY
     Dosage: 50 MG, 2X/DAY (EVERY 12 HOURS)
     Route: 042

REACTIONS (1)
  - Drug ineffective [Fatal]
